FAERS Safety Report 15643340 (Version 1)
Quarter: 2018Q4

REPORT INFORMATION
  Report Type: Report from Study
  Country: US (occurrence: US)
  Receive Date: 20181121
  Receipt Date: 20181121
  Transmission Date: 20190205
  Serious: Yes (Other)
  Sender: FDA-Public Use
  Company Number: US-ROCHE-2214142

PATIENT
  Sex: Female
  Weight: 64.01 kg

DRUGS (3)
  1. OCREVUS [Suspect]
     Active Substance: OCRELIZUMAB
     Route: 065
     Dates: start: 20180525
  2. OCREVUS [Suspect]
     Active Substance: OCRELIZUMAB
     Indication: RELAPSING-REMITTING MULTIPLE SCLEROSIS
     Dosage: 1ST HALF DOSE
     Route: 065
     Dates: start: 20180511
  3. OXYCODONE [Concomitant]
     Active Substance: OXYCODONE

REACTIONS (5)
  - Candida infection [Recovered/Resolved]
  - Multiple sclerosis relapse [Unknown]
  - Serum sickness [Not Recovered/Not Resolved]
  - Pain [Unknown]
  - Burning sensation [Unknown]
